FAERS Safety Report 7561637-4 (Version None)
Quarter: 2011Q2

REPORT INFORMATION
  Report Type: 
  Country: None (occurrence: None)
  Receive Date: 20110621
  Receipt Date: 20110614
  Transmission Date: 20111010
  Serious: Yes (Hospitalization, Other)
  Sender: FDA-Public Use
  Company Number: US-US-EMD SERONO, INC.-7017469

PATIENT
  Sex: Female
  Weight: 118 kg

DRUGS (5)
  1. REBIF [Suspect]
     Indication: RELAPSING-REMITTING MULTIPLE SCLEROSIS
     Route: 058
     Dates: start: 20100804
  2. REBIF [Suspect]
     Route: 058
     Dates: start: 20100801
  3. NAPROXEN (ALEVE) [Concomitant]
     Indication: PAIN IN EXTREMITY
  4. LISINOPRIL [Concomitant]
     Indication: HYPERTENSION
     Dates: start: 20090601
  5. BACLOFEN [Concomitant]
     Indication: MUSCLE SPASMS

REACTIONS (10)
  - OPTIC NEURITIS [None]
  - UPPER RESPIRATORY TRACT INFECTION [None]
  - HYPERTENSION [None]
  - INFLUENZA LIKE ILLNESS [None]
  - MULTIPLE SCLEROSIS RELAPSE [None]
  - BLOOD CALCIUM INCREASED [None]
  - CENTRAL NERVOUS SYSTEM INFLAMMATION [None]
  - SWELLING [None]
  - LOBAR PNEUMONIA [None]
  - INJECTION SITE ERYTHEMA [None]
